FAERS Safety Report 4353657-8 (Version None)
Quarter: 2004Q2

REPORT INFORMATION
  Report Type: 
  Country: None (occurrence: None)
  Receive Date: 20040430
  Receipt Date: 20040423
  Transmission Date: 20050107
  Serious: Yes (Hospitalization)
  Sender: FDA-Public Use
  Company Number: TPA2004A00489

PATIENT
  Age: 69 Year
  Sex: Male
  Weight: 100.6985 kg

DRUGS (2)
  1. ACTOS [Suspect]
     Indication: DIABETES MELLITUS NON-INSULIN-DEPENDENT
     Dosage: 45 MG, 1 IN 1 D, PER ORAL
     Route: 048
     Dates: start: 20020423
  2. HUMALOG 75/25 (INSULIN LISPRO) [Concomitant]

REACTIONS (1)
  - SALIVARY GLAND CANCER [None]
